FAERS Safety Report 4774543-5 (Version None)
Quarter: 2005Q3

REPORT INFORMATION
  Report Type: 
  Country: None (occurrence: None)
  Receive Date: 20050920
  Receipt Date: 20050920
  Transmission Date: 20060218
  Serious: No
  Sender: FDA-Public Use
  Company Number: None

PATIENT
  Sex: Male

DRUGS (2)
  1. NAPROXEN [Suspect]
     Dosage: 375 MG
  2. ALEVE [Suspect]
     Dosage: 220 MG

REACTIONS (3)
  - GASTRIC DISORDER [None]
  - HAEMORRHAGE [None]
  - MALAISE [None]
